FAERS Safety Report 12173349 (Version 1)
Quarter: 2016Q1

REPORT INFORMATION
  Report Type: Report from Study
  Country: US (occurrence: US)
  Receive Date: 20160311
  Receipt Date: 20160311
  Transmission Date: 20160526
  Serious: Yes (Other)
  Sender: FDA-Public Use
  Company Number: US-BAXTER-2016BAX010902

PATIENT
  Age: 28 Month

DRUGS (7)
  1. DOXORUBICIN [Suspect]
     Active Substance: DOXORUBICIN
     Indication: OSTEOSARCOMA
     Dosage: PER CYCLE FOR 8 CYCLES
     Route: 065
  2. LEUCOVORIN. [Suspect]
     Active Substance: LEUCOVORIN
     Indication: OSTEOSARCOMA
     Route: 065
  3. MESNA FOR INJECTION 1 GRAM [Suspect]
     Active Substance: MESNA
     Indication: PRODUCT USED FOR UNKNOWN INDICATION
     Route: 065
  4. METHOTREXATE [Suspect]
     Active Substance: METHOTREXATE
     Indication: OSTEOSARCOMA
     Dosage: 12 G/M2 (MAXIMUN 20 GRAM) FOR 10 DOSES
     Route: 065
  5. CISPLATIN. [Suspect]
     Active Substance: CISPLATIN
     Indication: OSTEOSARCOMA
     Dosage: PER CYCLE FOR 4 CYCLES
     Route: 065
  6. IFEX [Suspect]
     Active Substance: IFOSFAMIDE
     Indication: OSTEOSARCOMA
     Dosage: 9 G/M2 PER CYCLE FOR 3 CYLES, TOTAL DOSE 27 G/M2
     Route: 065
  7. DEXRAZOXANE. [Suspect]
     Active Substance: DEXRAZOXANE
     Indication: OSTEOSARCOMA
     Route: 065

REACTIONS (1)
  - Juvenile chronic myelomonocytic leukaemia [Unknown]
